FAERS Safety Report 8813210 (Version 1)
Quarter: 2012Q4

REPORT INFORMATION
  Report Type: 
  Country: US (occurrence: US)
  Receive Date: 20120927
  Receipt Date: 20120927
  Transmission Date: 20130627
  Serious: No
  Sender: FDA-Public Use
  Company Number: US-AMGEN-USASP2012037950

PATIENT
  Sex: Female

DRUGS (4)
  1. PROLIA [Suspect]
     Indication: OSTEOPOROSIS POSTMENOPAUSAL
     Dosage: UNK
     Dates: start: 20120410
  2. CALCIUM [Concomitant]
     Dosage: UNK
  3. VITAMIN D3 [Concomitant]
     Dosage: UNK
  4. POTASSIUM [Concomitant]
     Dosage: UNK

REACTIONS (5)
  - Muscle spasms [Unknown]
  - Osteoarthritis [Unknown]
  - Coccydynia [Unknown]
  - Myalgia [Unknown]
  - Pain in extremity [Unknown]
